FAERS Safety Report 10083932 (Version 1)
Quarter: 2014Q2

REPORT INFORMATION
  Report Type: Spontaneous
  Country: US (occurrence: US)
  Receive Date: 20140417
  Receipt Date: 20140417
  Transmission Date: 20141212
  Serious: Yes (Other)
  Sender: FDA-Public Use
  Company Number: US-PFIZER INC-2014104143

PATIENT
  Sex: Female

DRUGS (1)
  1. DILANTIN [Suspect]
     Dosage: UNK

REACTIONS (4)
  - Intentional product misuse [Unknown]
  - Convulsion [Unknown]
  - Lethargy [Unknown]
  - Dysphagia [Unknown]
